FAERS Safety Report 11939010 (Version 3)
Quarter: 2016Q1

REPORT INFORMATION
  Report Type: Spontaneous
  Country: US (occurrence: US)
  Receive Date: 20160122
  Receipt Date: 20160218
  Transmission Date: 20160526
  Serious: Yes (Life-Threatening, Hospitalization, Other)
  Sender: FDA-Public Use
  Company Number: US-MEDTRONIC-1046766

PATIENT
  Age: 27 Year
  Sex: Male

DRUGS (2)
  1. BACLOFEN UNKNOWN [Suspect]
     Active Substance: BACLOFEN
     Indication: MUSCLE SPASTICITY
     Route: 037
  2. BACLOFEN. [Suspect]
     Active Substance: BACLOFEN
     Route: 048

REACTIONS (15)
  - Pyrexia [None]
  - Pain [None]
  - Therapeutic response decreased [None]
  - Device kink [None]
  - Hyperhidrosis [None]
  - Salivary hypersecretion [None]
  - Hypotonia [None]
  - Drug withdrawal syndrome [None]
  - Heart rate increased [None]
  - Infection [None]
  - Meningitis [None]
  - Muscle rigidity [None]
  - Urine output decreased [None]
  - Posturing [None]
  - Muscle tightness [None]

NARRATIVE: CASE EVENT DATE: 201512
